FAERS Safety Report 14336740 (Version 3)
Quarter: 2018Q1

REPORT INFORMATION
  Report Type: Spontaneous
  Country: US (occurrence: US)
  Receive Date: 20171229
  Receipt Date: 20180324
  Transmission Date: 20180509
  Serious: Yes (Hospitalization, Other)
  Sender: FDA-Public Use
  Company Number: US-BRISTOL-MYERS SQUIBB COMPANY-BMS-2017-115273

PATIENT
  Sex: Male

DRUGS (1)
  1. YERVOY [Suspect]
     Active Substance: IPILIMUMAB
     Indication: PRODUCT USED FOR UNKNOWN INDICATION
     Dosage: 945 MG, UNK
     Route: 065

REACTIONS (13)
  - Sepsis [Unknown]
  - Anaemia [Unknown]
  - Hypertension [Unknown]
  - Hypocalcaemia [Unknown]
  - Weight increased [Unknown]
  - Pneumonia [Unknown]
  - Systemic inflammatory response syndrome [Unknown]
  - Autoimmune dermatitis [Unknown]
  - Hypotension [Unknown]
  - Anaphylactic reaction [Unknown]
  - Scrotal oedema [Unknown]
  - Staphylococcal infection [Unknown]
  - Thrombocytopenia [Unknown]
